FAERS Safety Report 8170648-X (Version None)
Quarter: 2012Q1

REPORT INFORMATION
  Report Type: 
  Country: None (occurrence: None)
  Receive Date: 20120228
  Receipt Date: 20120216
  Transmission Date: 20120608
  Serious: Yes (Hospitalization)
  Sender: FDA-Public Use
  Company Number: BE-ROCHE-1010238

PATIENT
  Sex: Male

DRUGS (1)
  1. MIRCERA [Suspect]
     Indication: RENAL FAILURE
     Dates: start: 20110701

REACTIONS (3)
  - LUNG INFECTION [None]
  - RESPIRATORY DISORDER [None]
  - SKIN DISORDER [None]
